FAERS Safety Report 20630348 (Version 1)
Quarter: 2022Q1

REPORT INFORMATION
  Report Type: Spontaneous
  Country: DK (occurrence: DK)
  Receive Date: 20220324
  Receipt Date: 20220324
  Transmission Date: 20220423
  Serious: Yes (Death, Hospitalization)
  Sender: FDA-Public Use
  Company Number: None

PATIENT
  Age: 70 Year
  Sex: Female

DRUGS (3)
  1. MORPHINE HYDROCHLORIDE [Suspect]
     Active Substance: MORPHINE HYDROCHLORIDE
     Indication: Pain
     Dosage: DOSE: UNKNOWN?STRENGTH: UNKNOWN
     Route: 065
     Dates: start: 20200704
  2. TRAMADOL HYDROCHLORIDE [Suspect]
     Active Substance: TRAMADOL HYDROCHLORIDE
     Indication: Pain
     Dosage: DOSE: UNKNOWN ?STRENGTH: UNKNOWN
     Route: 065
     Dates: start: 20200704
  3. HALOPERIDOL [Suspect]
     Active Substance: HALOPERIDOL
     Indication: Sedative therapy
     Dosage: DOSE: UNKNOWN?STRENGTH: UNKNOWN
     Route: 065
     Dates: start: 20200704

REACTIONS (4)
  - Pneumonia aspiration [Fatal]
  - Vomiting [Fatal]
  - Unresponsive to stimuli [Fatal]
  - Nausea [Fatal]

NARRATIVE: CASE EVENT DATE: 20200704
